FAERS Safety Report 8888497 (Version 1)
Quarter: 2012Q4

REPORT INFORMATION
  Report Type: 
  Country: DE (occurrence: DE)
  Receive Date: 20121106
  Receipt Date: 20121106
  Transmission Date: 20130627
  Serious: Yes (Hospitalization)
  Sender: FDA-Public Use
  Company Number: DE-ARROW-2012-18473

PATIENT
  Age: 54 Year
  Sex: Female
  Weight: 80 kg

DRUGS (4)
  1. RISPERIDONE (UNKNOWN) [Suspect]
     Indication: BIPOLAR DISORDER
     Dosage: 1-0.5-0.5 1Mg milligram(s)
     Route: 048
     Dates: start: 2008
  2. LITHIUM CARBONATE [Suspect]
     Indication: BIPOLAR DISORDER
     Dosage: 1-0-1; 400 mg; milligram(s)
     Route: 048
     Dates: start: 2008
  3. L-THYROXIN [Suspect]
     Indication: BIPOLAR DISORDER
     Dosage: daily dose: 125 Mg millgram(s) every Days 125Mg milligram(s) 1 1Day
     Route: 048
     Dates: start: 2008
  4. CLOZAPINE [Suspect]
     Indication: BIPOLAR DISORDER
     Dosage: 1.5-1-2 100Mg milligram(s)
     Route: 048
     Dates: start: 2008

REACTIONS (1)
  - Procedural haemorrhage [Unknown]
